FAERS Safety Report 14567894 (Version 3)
Quarter: 2018Q2

REPORT INFORMATION
  Report Type: Spontaneous
  Country: US (occurrence: US)
  Receive Date: 20180223
  Receipt Date: 20180403
  Transmission Date: 20180711
  Serious: Yes (Death, Other)
  Sender: FDA-Public Use
  Company Number: US-FERRINGPH-2017FE06500

PATIENT

DRUGS (1)
  1. DESMOPRESSIN [Suspect]
     Active Substance: DESMOPRESSIN
     Indication: HYPOPITUITARISM
     Dosage: 1 SPRAY EVERY NIGHT AT BEDTIME, ADDITIONAL SPRAY IN THE AFTERNOON AS NEEDED
     Route: 045

REACTIONS (5)
  - Fluid retention [Not Recovered/Not Resolved]
  - Product packaging quantity issue [Not Recovered/Not Resolved]
  - Liquid product physical issue [Not Recovered/Not Resolved]
  - Breast cancer metastatic [Fatal]
  - Malaise [Not Recovered/Not Resolved]

NARRATIVE: CASE EVENT DATE: 2017
